FAERS Safety Report 5169587-8 (Version None)
Quarter: 2006Q4

REPORT INFORMATION
  Report Type: 
  Country: None (occurrence: None)
  Receive Date: 20060918
  Receipt Date: 20051011
  Transmission Date: 20070319
  Serious: Yes (Life-Threatening, Hospitalization, Disabling)
  Sender: FDA-Public Use
  Company Number: US-JNJFOC-20051003487

PATIENT
  Sex: Female
  Weight: 70.7611 kg

DRUGS (1)
  1. TOPAMAX [Suspect]
     Indication: MIGRAINE
     Dosage: SEE IMAGE
     Route: 048
     Dates: start: 20050228, end: 20050316

REACTIONS (5)
  - ABDOMINAL PAIN [None]
  - HEPATITIS [None]
  - HEPATOCELLULAR DAMAGE [None]
  - NAUSEA [None]
  - PRURITUS [None]
